FAERS Safety Report 6810582-8 (Version None)
Quarter: 2010Q2

REPORT INFORMATION
  Report Type: 
  Country: None (occurrence: None)
  Receive Date: 20100630
  Receipt Date: 20100623
  Transmission Date: 20101027
  Serious: Yes (Hospitalization)
  Sender: FDA-Public Use
  Company Number: JP-ABBOTT-10P-087-0649119-00

PATIENT
  Sex: Male
  Weight: 54 kg

DRUGS (16)
  1. HUMIRA [Suspect]
     Indication: RHEUMATOID ARTHRITIS
     Route: 058
     Dates: start: 20091017, end: 20100615
  2. METHOTREXATE [Suspect]
     Indication: RHEUMATOID ARTHRITIS
     Dosage: 12 MG WEEKLY
     Route: 048
     Dates: start: 20090808
  3. PREDNISOLONE [Suspect]
     Indication: RHEUMATOID ARTHRITIS
     Route: 048
     Dates: start: 20090718, end: 20091128
  4. PREDNISOLONE [Suspect]
     Route: 048
     Dates: start: 20091219
  5. ISONIAZID [Concomitant]
     Indication: ANTIBIOTIC PROPHYLAXIS
     Route: 048
     Dates: start: 20090718, end: 20100109
  6. FOLIC ACID [Concomitant]
     Indication: PROPHYLAXIS
     Route: 048
     Dates: start: 20090718
  7. FOLIC ACID [Concomitant]
     Indication: ADVERSE DRUG REACTION
  8. VITAMIN B COMPLEX CAP [Concomitant]
     Indication: PROPHYLAXIS
     Route: 048
     Dates: start: 20090718
  9. VITAMIN B COMPLEX CAP [Concomitant]
     Indication: ADVERSE DRUG REACTION
  10. SULFAMETHOXAZOLE AND TRIMETHOPRIM [Concomitant]
     Indication: PROPHYLAXIS
     Route: 048
     Dates: start: 20090718
  11. SULFAMETHOXAZOLE AND TRIMETHOPRIM [Concomitant]
     Indication: PNEUMONIA
  12. ALENDRONATE SODIUM [Concomitant]
     Indication: OSTEOPOROSIS
     Route: 048
     Dates: start: 20090718
  13. ALFACALCIDOL [Concomitant]
     Indication: OSTEOPOROSIS
     Route: 048
     Dates: start: 20090613
  14. LANSOPRAZOLE [Concomitant]
     Indication: GASTRITIS PROPHYLAXIS
     Route: 048
     Dates: start: 20090718
  15. REBAMIPIDE [Concomitant]
     Indication: GASTRITIS PROPHYLAXIS
     Route: 048
     Dates: start: 20090718
  16. LOXOPROFEN SODIUM HYDRATE [Concomitant]
     Indication: RHEUMATOID ARTHRITIS
     Route: 048
     Dates: start: 20090718

REACTIONS (5)
  - ARTHRALGIA [None]
  - BACK PAIN [None]
  - JOINT STIFFNESS [None]
  - PLEURAL FIBROSIS [None]
  - TUBERCULOSIS [None]
